FAERS Safety Report 24191814 (Version 1)
Quarter: 2024Q3

REPORT INFORMATION
  Report Type: Spontaneous
  Country: GB (occurrence: GB)
  Receive Date: 20240809
  Receipt Date: 20240809
  Transmission Date: 20241016
  Serious: Yes (Other)
  Sender: JOHNSON AND JOHNSON
  Company Number: None

PATIENT
  Age: 21 Year
  Sex: Male
  Weight: 70 kg

DRUGS (1)
  1. INFLIXIMAB [Suspect]
     Active Substance: INFLIXIMAB
     Indication: Colitis ulcerative
     Dosage: 5MG/KG 6 WEEKLY
     Route: 065
     Dates: start: 20220222, end: 20240308

REACTIONS (1)
  - Paradoxical psoriasis [Not Recovered/Not Resolved]

NARRATIVE: CASE EVENT DATE: 20230912
